FAERS Safety Report 22158689 (Version 1)
Quarter: 2023Q1

REPORT INFORMATION
  Report Type: Spontaneous
  Country: FI (occurrence: FI)
  Receive Date: 20230331
  Receipt Date: 20230331
  Transmission Date: 20230417
  Serious: Yes (Hospitalization, Other)
  Sender: FDA-Public Use
  Company Number: None

PATIENT

DRUGS (4)
  1. DICLOFENAC SODIUM [Suspect]
     Active Substance: DICLOFENAC SODIUM
     Indication: Arthralgia
     Dosage: UNK
     Route: 065
     Dates: start: 2021, end: 2021
  2. DICLOFENAC SODIUM [Suspect]
     Active Substance: DICLOFENAC SODIUM
     Indication: Pain in extremity
  3. ESCITALOPRAM [Suspect]
     Active Substance: ESCITALOPRAM OXALATE
     Indication: Product used for unknown indication
     Dosage: 1 DF, QD
     Route: 065
  4. MESALAMINE [Suspect]
     Active Substance: MESALAMINE
     Indication: Product used for unknown indication
     Dosage: 3 DF, QD
     Route: 065

REACTIONS (10)
  - Gastric ulcer [Recovered/Resolved]
  - Loss of consciousness [Recovered/Resolved]
  - Gastrointestinal haemorrhage [Recovered/Resolved]
  - Dizziness [Recovered/Resolved]
  - Abdominal pain [Recovered/Resolved]
  - Incorrect dose administered [Unknown]
  - Nausea [Recovered/Resolved]
  - Psychological trauma [Recovered/Resolved]
  - Serum ferritin decreased [Recovered/Resolved]
  - Haemoglobin decreased [Recovered/Resolved]

NARRATIVE: CASE EVENT DATE: 20210101
